FAERS Safety Report 9122675 (Version 1)
Quarter: 2013Q1

REPORT INFORMATION
  Report Type: Spontaneous
  Country: FR (occurrence: FR)
  Receive Date: 20130115
  Receipt Date: 20130115
  Transmission Date: 20140127
  Serious: Yes (Hospitalization)
  Sender: FDA-Public Use
  Company Number: PHHY2013FR002466

PATIENT
  Age: 46 Year
  Sex: Male

DRUGS (4)
  1. GILENYA [Suspect]
     Indication: MULTIPLE SCLEROSIS
     Dosage: 0.5 MG, QD
     Route: 048
     Dates: start: 20111220
  2. SERETIDE [Suspect]
     Indication: BRONCHOSPASM
     Dosage: 250/20 UG FOR ONE DOSE, UNK
     Dates: start: 20120113
  3. LYRICA [Suspect]
     Dosage: 300 MG, BID
     Route: 048
  4. SIFROL [Suspect]
     Dosage: UNK UKN, UNK
     Route: 048

REACTIONS (4)
  - Testicular necrosis [Recovered/Resolved]
  - Testicular pain [Recovered/Resolved]
  - Testicular disorder [Recovered/Resolved]
  - Calcinosis [Recovered/Resolved]
